FAERS Safety Report 9661403 (Version 1)
Quarter: 2013Q4

REPORT INFORMATION
  Report Type: Spontaneous
  Country: US (occurrence: None)
  Receive Date: 20131030
  Receipt Date: 20131030
  Transmission Date: 20140711
  Serious: Yes (Other)
  Sender: FDA-Public Use
  Company Number: SYM-2013-11979

PATIENT
  Age: 86 Year
  Sex: Female
  Weight: 58.97 kg

DRUGS (2)
  1. VASOTEC [Suspect]
     Indication: HYPERTENSION
     Route: 048
  2. PROPRANOLOL (PROPRANOLOL) (PROPRANOLOL) [Concomitant]

REACTIONS (2)
  - Blood pressure inadequately controlled [None]
  - Product formulation issue [None]
